FAERS Safety Report 14903913 (Version 1)
Quarter: 2018Q2

REPORT INFORMATION
  Report Type: Spontaneous
  Country: US (occurrence: US)
  Receive Date: 20180430
  Receipt Date: 20180430
  Transmission Date: 20180711
  Serious: Yes (Death)
  Sender: FDA-Public Use
  Company Number: None

PATIENT
  Age: 52 Year
  Sex: Female
  Weight: 41 kg

DRUGS (10)
  1. RADIATION [Suspect]
     Active Substance: RADIATION THERAPY
     Indication: NON-SMALL CELL LUNG CANCER METASTATIC
     Dosage: ?          OTHER ROUTE:RADIATION?
     Dates: start: 20180215, end: 20180223
  2. ALBUTEROL. [Concomitant]
     Active Substance: ALBUTEROL
  3. OXYCONTIN [Concomitant]
     Active Substance: OXYCODONE HYDROCHLORIDE
  4. BENZONATATE. [Concomitant]
     Active Substance: BENZONATATE
  5. DOCUSATE-SENNA [Concomitant]
  6. RADIATION [Suspect]
     Active Substance: RADIATION THERAPY
     Indication: METASTASES TO CENTRAL NERVOUS SYSTEM
     Dosage: ?          OTHER ROUTE:RADIATION?
     Dates: start: 20180215, end: 20180223
  7. PEMBROLIZUMAB. [Suspect]
     Active Substance: PEMBROLIZUMAB
     Indication: NON-SMALL CELL LUNG CANCER
     Dosage: ?          OTHER FREQUENCY:Q21 DAYS;?
     Route: 042
     Dates: start: 20180202, end: 20180202
  8. OXYCODONE [Concomitant]
     Active Substance: OXYCODONE
  9. SENEXON [Concomitant]
     Active Substance: SENNOSIDES A AND B
  10. AMLODIPINE [Concomitant]
     Active Substance: AMLODIPINE BESYLATE

REACTIONS (1)
  - Disease progression [None]

NARRATIVE: CASE EVENT DATE: 20180303
